FAERS Safety Report 15540767 (Version 1)
Quarter: 2018Q4

REPORT INFORMATION
  Report Type: Spontaneous
  Country: US (occurrence: US)
  Receive Date: 20181016
  Receipt Date: 20181016
  Transmission Date: 20190205
  Serious: No
  Sender: FDA-Public Use
  Company Number: None

PATIENT
  Sex: Male

DRUGS (1)
  1. RELAFEN [Suspect]
     Active Substance: NABUMETONE

REACTIONS (1)
  - Gastrointestinal haemorrhage [None]
